FAERS Safety Report 24156368 (Version 1)
Quarter: 2024Q3

REPORT INFORMATION
  Report Type: Report from Study
  Country: DE (occurrence: DE)
  Receive Date: 20240731
  Receipt Date: 20240731
  Transmission Date: 20241017
  Serious: No
  Sender: ROCHE
  Company Number: DE-ML39632-2033525-0

PATIENT
  Age: 64 Year
  Sex: Female
  Weight: 81 kg

DRUGS (14)
  1. OCREVUS [Suspect]
     Active Substance: OCRELIZUMAB
     Indication: Primary progressive multiple sclerosis
     Route: 042
     Dates: start: 20200901
  2. OCREVUS [Suspect]
     Active Substance: OCRELIZUMAB
     Route: 042
     Dates: start: 20200303, end: 20200317
  3. PREDNISOLUT [PREDNISOLONE HEMISUCCINATE] [Concomitant]
     Indication: Prophylaxis
     Route: 042
     Dates: start: 20210907
  4. CHOLECALCIFEROL [Concomitant]
     Active Substance: CHOLECALCIFEROL
     Indication: Vitamin D deficiency
     Dates: start: 2018
  5. GABAPENTIN [Concomitant]
     Active Substance: GABAPENTIN
     Indication: Neuralgia
     Route: 048
  6. TIZANIDINE HYDROCHLORIDE [Concomitant]
     Active Substance: TIZANIDINE HYDROCHLORIDE
     Indication: Muscle spasticity
     Route: 048
     Dates: start: 202009
  7. CYMBALTA [Concomitant]
     Active Substance: DULOXETINE HYDROCHLORIDE
     Indication: Depression
     Route: 048
     Dates: start: 202202
  8. RAMIPRIL [Concomitant]
     Active Substance: RAMIPRIL
     Indication: Hypertension
     Route: 048
     Dates: start: 20210127
  9. BACLOFEN [Concomitant]
     Active Substance: BACLOFEN
     Indication: Multiple sclerosis
     Route: 029
     Dates: start: 20220926
  10. BACLOFEN [Concomitant]
     Active Substance: BACLOFEN
     Route: 048
     Dates: start: 20210127, end: 20220916
  11. NABIXIMOLS [Concomitant]
     Active Substance: NABIXIMOLS
     Indication: Prophylaxis
     Dates: start: 20210831
  12. NABIXIMOLS [Concomitant]
     Active Substance: NABIXIMOLS
     Indication: Muscle spasticity
  13. IBUPROFEN [Concomitant]
     Active Substance: IBUPROFEN
     Indication: Pain management
     Dosage: DEFINITION OF THE INTERVAL: AS REQUIRED
     Route: 048
     Dates: start: 2019
  14. VOLON [Concomitant]
     Indication: Prophylaxis
     Route: 042
     Dates: start: 20200303

REACTIONS (1)
  - Influenza [Recovered/Resolved]

NARRATIVE: CASE EVENT DATE: 20240228
